FAERS Safety Report 8564455-3 (Version None)
Quarter: 2012Q3

REPORT INFORMATION
  Report Type: 
  Country: None (occurrence: None)
  Receive Date: 20120803
  Receipt Date: 20120725
  Transmission Date: 20120928
  Serious: Yes (Other)
  Sender: FDA-Public Use
  Company Number: CO-AMGEN-COLSP2012043607

PATIENT
  Age: 38 Year
  Sex: Female

DRUGS (5)
  1. ENBREL [Suspect]
     Indication: RHEUMATOID ARTHRITIS
     Dosage: 50 MG, WEEKLY
     Route: 058
     Dates: start: 20120101
  2. DICLOFENAC SODIUM [Concomitant]
     Indication: PAIN
     Dosage: UNK, AS NEEDED
     Route: 048
  3. AZATHIOPRINE [Concomitant]
     Indication: RHEUMATOID ARTHRITIS
     Dosage: 50 MG, 1X/DAY
     Route: 048
     Dates: start: 20111201
  4. ARTRIMAN [Concomitant]
     Dosage: UNK
  5. CHLOROQUINE PHOSPHATE [Concomitant]
     Dosage: 250 MG, 1X/DAY
     Route: 065

REACTIONS (10)
  - MALAISE [None]
  - ALOPECIA [None]
  - OROPHARYNGEAL PAIN [None]
  - CONSTIPATION [None]
  - BONE DEFORMITY [None]
  - NEURALGIA [None]
  - ARTHRALGIA [None]
  - PAIN IN EXTREMITY [None]
  - RADIAL NERVE PALSY [None]
  - INFLUENZA [None]
